FAERS Safety Report 8393903-7 (Version None)
Quarter: 2012Q2

REPORT INFORMATION
  Report Type: 
  Country: None (occurrence: None)
  Receive Date: 20120516
  Receipt Date: 20120504
  Transmission Date: 20120825
  Serious: Yes (Hospitalization, Other)
  Sender: FDA-Public Use
  Company Number: WAES 1205USA00761

PATIENT
  Age: 47 Year
  Sex: Female

DRUGS (4)
  1. FOSAMAX [Suspect]
     Indication: OSTEOPOROSIS PROPHYLAXIS
     Dosage: 35 MG/WKY PO
     Route: 048
     Dates: start: 20071122
  2. LIPITOR [Suspect]
     Indication: HYPERLIPIDAEMIA
     Dosage: 20 MG/DAILY, PO
     Route: 048
     Dates: start: 20110411
  3. [THERAPY UNSPECIFIED] [Suspect]
     Indication: RHEUMATOID ARTHRITIS
     Dosage: 5 MG/BID, PO
     Route: 048
     Dates: start: 20100629, end: 20111113
  4. PREDNISOLONE [Suspect]
     Indication: RHEUMATOID ARTHRITIS
     Dosage: 3 MG/DAILY, PO
     Route: 048
     Dates: start: 20100727

REACTIONS (1)
  - BREAST CANCER FEMALE [None]
